FAERS Safety Report 5855081-5 (Version None)
Quarter: 2008Q3

REPORT INFORMATION
  Report Type: 
  Country: None (occurrence: None)
  Receive Date: 20080822
  Receipt Date: 20080625
  Transmission Date: 20090109
  Serious: No
  Sender: FDA-Public Use
  Company Number: US-ABBOTT-08P-163-0459882-00

PATIENT
  Sex: Female
  Weight: 83.082 kg

DRUGS (2)
  1. SYNTHROID [Suspect]
     Indication: THYROID DISORDER
     Dosage: ON AND OFF
     Route: 048
  2. ENZYME-ZIROSTOT [Concomitant]
     Indication: PRODUCTIVE COUGH
     Dosage: 8 MG, 1 HOUR BEFORE TAKING SYNTHROID
     Route: 048

REACTIONS (8)
  - ABDOMINAL PAIN UPPER [None]
  - ALOPECIA [None]
  - HEADACHE [None]
  - LABORATORY TEST ABNORMAL [None]
  - LOCAL SWELLING [None]
  - PAIN [None]
  - STOMACH DISCOMFORT [None]
  - THYROID FUNCTION TEST ABNORMAL [None]
